FAERS Safety Report 7285006-X (Version None)
Quarter: 2011Q1

REPORT INFORMATION
  Report Type: 
  Country: None (occurrence: None)
  Receive Date: 20110204
  Receipt Date: 20110204
  Transmission Date: 20110831
  Serious: Yes (Death, Hospitalization)
  Sender: FDA-Public Use
  Company Number: None

PATIENT
  Sex: Male
  Weight: 54.8 kg

DRUGS (1)
  1. MEMANTINE HYDROCHLORIDE [Suspect]
     Dosage: 210 MG

REACTIONS (2)
  - GAIT DISTURBANCE [None]
  - PAIN [None]
